FAERS Safety Report 23328685 (Version 1)
Quarter: 2023Q4

REPORT INFORMATION
  Report Type: Report from Study
  Country: PR (occurrence: PR)
  Receive Date: 20231221
  Receipt Date: 20231221
  Transmission Date: 20240110
  Serious: Yes (Other)
  Sender: FDA-Public Use
  Company Number: PR-ABBVIE-5551158

PATIENT
  Sex: Female
  Weight: 94.8 kg

DRUGS (4)
  1. SKYRIZI [Suspect]
     Active Substance: RISANKIZUMAB-RZAA
     Indication: Psoriasis
     Dosage: FORM STRENGTH: 150 MILLIGRAM
     Route: 058
     Dates: start: 20210820
  2. COVID-19 vaccine [Concomitant]
     Indication: COVID-19 immunisation
     Dosage: 1ST DOSE
     Route: 065
  3. COVID-19 vaccine [Concomitant]
     Indication: COVID-19 immunisation
     Dosage: 3RD DOSE
     Route: 065
  4. COVID-19 vaccine [Concomitant]
     Indication: COVID-19 immunisation
     Dosage: 2ND DOSE
     Route: 065

REACTIONS (3)
  - Myocardial infarction [Recovered/Resolved]
  - Aortic occlusion [Recovered/Resolved]
  - Jugular vein occlusion [Recovered/Resolved]

NARRATIVE: CASE EVENT DATE: 20231019
